FAERS Safety Report 15806696 (Version 2)
Quarter: 2019Q3

REPORT INFORMATION
  Report Type: Spontaneous
  Country: US (occurrence: US)
  Receive Date: 20190110
  Receipt Date: 20190812
  Transmission Date: 20191004
  Serious: No
  Sender: FDA-Public Use
  Company Number: US-MYLANLABS-2018M1097254

PATIENT
  Age: 32 Year
  Sex: Female
  Weight: 96 kg

DRUGS (5)
  1. EMSAM [Suspect]
     Active Substance: SELEGILINE
     Indication: BIPOLAR II DISORDER
     Dosage: UNK UNK, QD
     Route: 003
  2. LAMOTRIGINE. [Concomitant]
     Active Substance: LAMOTRIGINE
  3. KLONOPIN [Concomitant]
     Active Substance: CLONAZEPAM
  4. LITHIUM CARBONATE. [Concomitant]
     Active Substance: LITHIUM CARBONATE
  5. LEVOTHYROXINE. [Concomitant]
     Active Substance: LEVOTHYROXINE

REACTIONS (4)
  - Diarrhoea [Not Recovered/Not Resolved]
  - Nausea [Not Recovered/Not Resolved]
  - Vomiting [Not Recovered/Not Resolved]
  - Insomnia [Not Recovered/Not Resolved]
